FAERS Safety Report 8545687-7 (Version None)
Quarter: 2012Q3

REPORT INFORMATION
  Report Type: 
  Country: None (occurrence: None)
  Receive Date: 20120727
  Receipt Date: 20120711
  Transmission Date: 20120928
  Serious: Yes (Other)
  Sender: FDA-Public Use
  Company Number: CHPA2012US015320

PATIENT
  Age: 71 Year
  Sex: Female

DRUGS (3)
  1. EXCEDRIN EXTRA STRENGTH TABLETS [Suspect]
     Dosage: 2 DF, UNK
     Route: 048
     Dates: start: 19840101
  2. EXCEDRIN EXTRA STRENGTH TABLETS [Suspect]
     Indication: OSTEOARTHRITIS
     Dosage: 2 DF, Q4-6H
     Route: 048
  3. TYLENOL [Suspect]
     Dosage: 2 DF, UNK
     Route: 048

REACTIONS (8)
  - DRUG ADMINISTRATION ERROR [None]
  - HYPOAESTHESIA [None]
  - WEIGHT DECREASED [None]
  - DEPRESSION [None]
  - SOMNOLENCE [None]
  - GUN SHOT WOUND [None]
  - SCIATIC NERVE INJURY [None]
  - DECREASED APPETITE [None]
